FAERS Safety Report 4912442-6 (Version None)
Quarter: 2006Q1

REPORT INFORMATION
  Report Type: 
  Country: None (occurrence: None)
  Receive Date: 20060215
  Receipt Date: 20050323
  Transmission Date: 20060701
  Serious: No
  Sender: FDA-Public Use
  Company Number: US-GLAXOSMITHKLINE-A0551050A

PATIENT
  Age: 55 Year
  Sex: Female

DRUGS (7)
  1. VALTREX [Suspect]
     Dosage: 500MG THREE TIMES PER DAY
     Route: 048
     Dates: start: 20050318, end: 20050321
  2. SUDAFED 12 HOUR [Concomitant]
  3. TYLENOL (CAPLET) [Concomitant]
  4. VITAMINS [Concomitant]
  5. GINKO [Concomitant]
  6. EVENING PRIMROSE [Concomitant]
  7. HERBAL MEDICATION [Concomitant]

REACTIONS (8)
  - FATIGUE [None]
  - GENITAL RASH [None]
  - HEAT RASH [None]
  - MYALGIA [None]
  - NAUSEA [None]
  - PARAESTHESIA [None]
  - PRURITUS [None]
  - RASH [None]
